FAERS Safety Report 14284930 (Version 1)
Quarter: 2017Q4

REPORT INFORMATION
  Report Type: Spontaneous
  Country: US (occurrence: None)
  Receive Date: 20171214
  Receipt Date: 20171214
  Transmission Date: 20180321
  Serious: Yes (Other)
  Sender: FDA-Public Use
  Company Number: None

PATIENT
  Age: 67 Year
  Sex: Female
  Weight: 66.23 kg

DRUGS (1)
  1. ATENOLOL TAB 25MG GENERIC FOR TENORMIN [Suspect]
     Active Substance: ATENOLOL
     Indication: HYPERTENSION
     Route: 048
     Dates: start: 20171111, end: 20171129

REACTIONS (4)
  - Blood pressure increased [None]
  - Dizziness [None]
  - Product substitution issue [None]
  - Heart rate decreased [None]

NARRATIVE: CASE EVENT DATE: 20171111
